FAERS Safety Report 24895369 (Version 1)
Quarter: 2025Q1

REPORT INFORMATION
  Report Type: Report from Study
  Country: CA (occurrence: CA)
  Receive Date: 20250128
  Receipt Date: 20250128
  Transmission Date: 20250409
  Serious: Yes (Hospitalization, Other)
  Sender: ELI LILLY AND COMPANY
  Company Number: CA-ELI_LILLY_AND_COMPANY-CA202302010338

PATIENT
  Age: 55 Year
  Sex: Female

DRUGS (4)
  1. TALTZ [Suspect]
     Active Substance: IXEKIZUMAB
     Indication: Psoriasis
     Route: 058
     Dates: start: 20221010
  2. TALTZ [Suspect]
     Active Substance: IXEKIZUMAB
     Route: 058
     Dates: start: 20221020
  3. TALTZ [Suspect]
     Active Substance: IXEKIZUMAB
     Route: 058
  4. TALTZ [Suspect]
     Active Substance: IXEKIZUMAB
     Route: 058

REACTIONS (12)
  - Fungal skin infection [Recovering/Resolving]
  - Psoriasis [Recovering/Resolving]
  - Eczema [Recovering/Resolving]
  - Internal haemorrhage [Recovered/Resolved]
  - Weight decreased [Unknown]
  - Psoriasis [Unknown]
  - Discomfort [Unknown]
  - Illness [Unknown]
  - Hepatic enzyme increased [Recovered/Resolved]
  - Hepatic pain [Unknown]
  - Liver disorder [Unknown]
  - Arthralgia [Not Recovered/Not Resolved]
